FAERS Safety Report 18827672 (Version 1)
Quarter: 2021Q1

REPORT INFORMATION
  Report Type: Spontaneous
  Country: US (occurrence: US)
  Receive Date: 20210201
  Receipt Date: 20210201
  Transmission Date: 20210419
  Serious: No
  Sender: FDA-Public Use
  Company Number: US-ABBVIE-20K-163-3258211-00

PATIENT
  Sex: Female

DRUGS (1)
  1. HUMIRA [Suspect]
     Active Substance: ADALIMUMAB
     Indication: PSORIASIS
     Route: 058

REACTIONS (8)
  - Feeling abnormal [Unknown]
  - Dry skin [Unknown]
  - Skin exfoliation [Unknown]
  - Muscle spasms [Unknown]
  - Frustration tolerance decreased [Not Recovered/Not Resolved]
  - Arthralgia [Unknown]
  - Movement disorder [Not Recovered/Not Resolved]
  - Arthropathy [Not Recovered/Not Resolved]
